FAERS Safety Report 15768529 (Version 2)
Quarter: 2019Q1

REPORT INFORMATION
  Report Type: Report from Study
  Country: None (occurrence: US)
  Receive Date: 20181227
  Receipt Date: 20190219
  Transmission Date: 20190417
  Serious: Yes (Hospitalization, Other)
  Sender: FDA-Public Use
  Company Number: US-ABBVIE-18K-163-2602176-00

PATIENT
  Age: 64 Year
  Sex: Male
  Weight: 145.28 kg

DRUGS (3)
  1. TIZANIDINE. [Concomitant]
     Active Substance: TIZANIDINE
     Indication: SLEEP DISORDER THERAPY
  2. HUMIRA [Suspect]
     Active Substance: ADALIMUMAB
     Indication: RHEUMATOID ARTHRITIS
     Route: 058
     Dates: start: 2002, end: 2017
  3. HUMIRA [Suspect]
     Active Substance: ADALIMUMAB
     Route: 058
     Dates: end: 201802

REACTIONS (20)
  - Kidney enlargement [Recovering/Resolving]
  - Blood pressure abnormal [Recovered/Resolved]
  - Cardiac failure congestive [Not Recovered/Not Resolved]
  - Blood creatinine increased [Recovering/Resolving]
  - Hypocitraturia [Recovering/Resolving]
  - Weight fluctuation [Not Recovered/Not Resolved]
  - Kidney contusion [Recovering/Resolving]
  - Dysstasia [Recovered/Resolved]
  - Blood test abnormal [Recovered/Resolved]
  - Hypertension [Recovering/Resolving]
  - Renal haematoma [Recovering/Resolving]
  - Foot operation [Recovered/Resolved]
  - Staphylococcal infection [Recovered/Resolved]
  - Nephrolithiasis [Not Recovered/Not Resolved]
  - Wound [Recovered/Resolved]
  - Post procedural infection [Recovered/Resolved]
  - Blister rupture [Recovered/Resolved]
  - Arthralgia [Not Recovered/Not Resolved]
  - Cough [Not Recovered/Not Resolved]
  - Surgical failure [Unknown]

NARRATIVE: CASE EVENT DATE: 201708
